FAERS Safety Report 16328874 (Version 1)
Quarter: 2019Q2

REPORT INFORMATION
  Report Type: Spontaneous
  Country: US (occurrence: US)
  Receive Date: 20190519
  Receipt Date: 20190519
  Transmission Date: 20190711
  Serious: No
  Sender: FDA-Public Use
  Company Number: US-JNJFOC-20190503256

PATIENT

DRUGS (1)
  1. INVEGA SUSTENNA [Suspect]
     Active Substance: PALIPERIDONE PALMITATE
     Indication: PRODUCT USED FOR UNKNOWN INDICATION
     Dosage: 1ST INITIATION DOSE
     Route: 030
     Dates: start: 20190429

REACTIONS (3)
  - Gait disturbance [Unknown]
  - Dysphagia [Unknown]
  - Drooling [Unknown]

NARRATIVE: CASE EVENT DATE: 2019
